FAERS Safety Report 7508222-8 (Version None)
Quarter: 2011Q2

REPORT INFORMATION
  Report Type: 
  Country: None (occurrence: None)
  Receive Date: 20110421
  Receipt Date: 20110414
  Transmission Date: 20111010
  Serious: Yes (Other)
  Sender: FDA-Public Use
  Company Number: ALL1-2010-05951

PATIENT
  Sex: Female

DRUGS (1)
  1. VYVANSE [Suspect]
     Indication: PRODUCT USED FOR UNKNOWN INDICATION
     Dosage: 70 MG, 1X/DAY:QD, ORAL, 50 MG, 1X/DAY:QD, ORAL
     Route: 048

REACTIONS (3)
  - APHASIA [None]
  - WEIGHT DECREASED [None]
  - NAUSEA [None]
